FAERS Safety Report 6931161-8 (Version None)
Quarter: 2010Q3

REPORT INFORMATION
  Report Type: 
  Country: None (occurrence: None)
  Receive Date: 20100818
  Receipt Date: 20100810
  Transmission Date: 20110219
  Serious: Yes (Hospitalization, Other)
  Sender: FDA-Public Use
  Company Number: US-AMGEN-KDL425359

PATIENT
  Sex: Male

DRUGS (11)
  1. ENBREL [Suspect]
     Indication: RHEUMATOID ARTHRITIS
     Route: 058
     Dates: start: 20041117, end: 20100616
  2. PRAVASTATIN [Concomitant]
  3. XOPENEX [Concomitant]
  4. SINGULAIR [Concomitant]
  5. TRAMADOL [Concomitant]
  6. LIDODERM [Concomitant]
  7. HECTORAL [Concomitant]
  8. COZAAR [Concomitant]
  9. T0RSEMIDE [Concomitant]
  10. ALLOPURINOL [Concomitant]
  11. TRAVATAN [Concomitant]

REACTIONS (4)
  - FALL [None]
  - PNEUMONIA [None]
  - RENAL IMPAIRMENT [None]
  - THROMBOSIS [None]
